FAERS Safety Report 7594830-5 (Version None)
Quarter: 2011Q3

REPORT INFORMATION
  Report Type: 
  Country: None (occurrence: None)
  Receive Date: 20110707
  Receipt Date: 20110627
  Transmission Date: 20111222
  Serious: Yes (Hospitalization, Other)
  Sender: FDA-Public Use
  Company Number: US-ELI_LILLY_AND_COMPANY-US201002003766

PATIENT
  Sex: Male
  Weight: 126.98 kg

DRUGS (4)
  1. LANTUS [Concomitant]
     Indication: DIABETES MELLITUS
  2. BYETTA [Suspect]
     Dosage: UNK, UNKNOWN
     Route: 065
     Dates: start: 20070101, end: 20080430
  3. NEXIUM [Concomitant]
     Indication: DYSPEPSIA
  4. METFORMIN HCL [Concomitant]
     Indication: DIABETES MELLITUS

REACTIONS (5)
  - NAUSEA [None]
  - DIARRHOEA [None]
  - PANCREATITIS [None]
  - OFF LABEL USE [None]
  - GALLBLADDER DISORDER [None]
